FAERS Safety Report 10181858 (Version 1)
Quarter: 2014Q2

REPORT INFORMATION
  Report Type: Spontaneous
  Country: JP (occurrence: JP)
  Receive Date: 20140519
  Receipt Date: 20140519
  Transmission Date: 20141212
  Serious: Yes (Other)
  Sender: FDA-Public Use
  Company Number: JP-ELI_LILLY_AND_COMPANY-JP201405005013

PATIENT
  Sex: Female

DRUGS (1)
  1. ADCIRCA [Suspect]
     Indication: PULMONARY ARTERIAL HYPERTENSION
     Dosage: 40 MG, QD
     Route: 048
     Dates: start: 201403, end: 20140506

REACTIONS (5)
  - Hepatic function abnormal [Recovered/Resolved]
  - Erythema multiforme [Unknown]
  - Rash [Unknown]
  - Oedema mucosal [Not Recovered/Not Resolved]
  - Gallbladder oedema [Unknown]
